FAERS Safety Report 18453149 (Version 1)
Quarter: 2020Q4

REPORT INFORMATION
  Report Type: Spontaneous
  Country: US (occurrence: US)
  Receive Date: 20201102
  Receipt Date: 20201102
  Transmission Date: 20210114
  Serious: Yes (Hospitalization)
  Sender: FDA-Public Use
  Company Number: None

PATIENT
  Age: 70 Year
  Sex: Male

DRUGS (6)
  1. OMEPRAZOLE 40MG [Concomitant]
     Active Substance: OMEPRAZOLE
     Dates: start: 20201015
  2. CIPROFLOXACIN. [Concomitant]
     Active Substance: CIPROFLOXACIN
     Dates: start: 20201030
  3. ABIRATERONE. [Suspect]
     Active Substance: ABIRATERONE ACETATE
     Indication: PROSTATE CANCER
     Route: 048
  4. HYDROCODONE/APAP 7.5-325 [Concomitant]
     Dates: start: 20201012
  5. PREDNISONE 5MG [Concomitant]
     Active Substance: PREDNISONE
     Dates: start: 20201001
  6. CARVEDILOL 3.125MG [Concomitant]
     Active Substance: CARVEDILOL
     Dates: start: 20200914

REACTIONS (1)
  - Catheter placement [None]

NARRATIVE: CASE EVENT DATE: 20201030
